FAERS Safety Report 11060637 (Version 1)
Quarter: 2015Q2

REPORT INFORMATION
  Report Type: Spontaneous
  Country: US (occurrence: US)
  Receive Date: 20150423
  Receipt Date: 20150423
  Transmission Date: 20150821
  Serious: Yes (Other)
  Sender: FDA-Public Use
  Company Number: US-ROCHE-1567679

PATIENT
  Age: 69 Year
  Sex: Female

DRUGS (1)
  1. KADCYLA [Suspect]
     Active Substance: ADO-TRASTUZUMAB EMTANSINE
     Indication: PRODUCT USED FOR UNKNOWN INDICATION
     Dosage: COMPLETED 19 CYCLES
     Route: 065

REACTIONS (4)
  - Pulmonary hypertension [Unknown]
  - Hepatic adenoma [Unknown]
  - Right ventricular failure [Unknown]
  - Hepatic cirrhosis [Unknown]
